FAERS Safety Report 19130981 (Version 1)
Quarter: 2021Q2

REPORT INFORMATION
  Report Type: Spontaneous
  Country: FR (occurrence: FR)
  Receive Date: 20210414
  Receipt Date: 20210414
  Transmission Date: 20210717
  Serious: Yes (Other)
  Sender: FDA-Public Use
  Company Number: FR-DENTSPLY-2021SCDP000109

PATIENT
  Age: 4 Month
  Sex: Female

DRUGS (1)
  1. PRILOCAINE AND LIDOCAINE [Suspect]
     Active Substance: LIDOCAINE\PRILOCAINE
     Indication: VACCINATION SITE ANAESTHESIA
     Dosage: 1 DOSAGE FORM ONCE A DAY, CUTANEOUS PATCH
     Route: 003
     Dates: start: 20210322, end: 20210322

REACTIONS (2)
  - Blister [None]
  - Application site burn [None]

NARRATIVE: CASE EVENT DATE: 20210322
